FAERS Safety Report 8678549 (Version 2)
Quarter: 2013Q3

REPORT INFORMATION
  Report Type: Report from Study
  Country: FR (occurrence: FR)
  Receive Date: 20120723
  Receipt Date: 20130712
  Transmission Date: 20140515
  Serious: Yes (Hospitalization, Other)
  Sender: FDA-Public Use
  Company Number: FR-CELGENEUS-056-50794-12063879

PATIENT
  Age: 71 Year
  Sex: Female
  Weight: 100 kg

DRUGS (2)
  1. VIDAZA [Suspect]
     Indication: PRODUCT USED FOR UNKNOWN INDICATION
     Dosage: 157.5 MILLIGRAM
     Route: 058
     Dates: start: 20120611, end: 20120615
  2. REVLIMID [Suspect]
     Indication: PRODUCT USED FOR UNKNOWN INDICATION
     Route: 048
     Dates: start: 20120611, end: 20120628

REACTIONS (3)
  - Subarachnoid haemorrhage [Recovering/Resolving]
  - Candida pneumonia [Not Recovered/Not Resolved]
  - Febrile neutropenia [Not Recovered/Not Resolved]
